FAERS Safety Report 7229240-3 (Version None)
Quarter: 2011Q1

REPORT INFORMATION
  Report Type: 
  Country: None (occurrence: None)
  Receive Date: 20110117
  Receipt Date: 20110105
  Transmission Date: 20110831
  Serious: Yes (Hospitalization)
  Sender: FDA-Public Use
  Company Number: US-CELGENEUS-163-21880-11010497

PATIENT
  Sex: Female
  Weight: 45.3 kg

DRUGS (11)
  1. ONDANSETRON [Concomitant]
     Route: 048
     Dates: start: 20101219
  2. DEXAMETHASONE [Suspect]
     Indication: MULTIPLE MYELOMA
     Route: 048
  3. REVLIMID [Suspect]
     Indication: MULTIPLE MYELOMA
     Route: 048
     Dates: start: 20101221, end: 20101229
  4. CARFILZOMIB [Suspect]
     Indication: MULTIPLE MYELOMA
     Route: 051
     Dates: start: 20101221, end: 20101229
  5. ASPIRIN [Concomitant]
     Route: 048
     Dates: start: 20101220
  6. LEVAQUIN [Concomitant]
     Route: 065
     Dates: start: 20110101, end: 20110103
  7. ALLOPURINOL [Concomitant]
     Route: 065
     Dates: start: 20101219
  8. PREVACID [Concomitant]
     Route: 048
     Dates: start: 20101220
  9. REVLIMID [Suspect]
     Route: 048
     Dates: start: 20110101, end: 20110103
  10. FAMCICLOVIR [Concomitant]
     Route: 065
     Dates: start: 20101220
  11. DAPSONE [Concomitant]
     Route: 065
     Dates: start: 20101220

REACTIONS (1)
  - OXYGEN SATURATION DECREASED [None]
